FAERS Safety Report 6673892-3 (Version None)
Quarter: 2010Q2

REPORT INFORMATION
  Report Type: 
  Country: None (occurrence: None)
  Receive Date: 20100409
  Receipt Date: 20100330
  Transmission Date: 20101027
  Serious: Yes (Hospitalization)
  Sender: FDA-Public Use
  Company Number: US-BIOGENIDEC-2010BI004846

PATIENT
  Age: 48 Year
  Sex: Female

DRUGS (3)
  1. AVONEX [Suspect]
     Indication: MULTIPLE SCLEROSIS
     Route: 030
     Dates: start: 20030801
  2. AVONEX [Suspect]
     Route: 030
     Dates: start: 20030801
  3. AVONEX [Suspect]
     Route: 030
     Dates: start: 20010201, end: 20030801

REACTIONS (4)
  - IMPAIRED HEALING [None]
  - LOWER LIMB FRACTURE [None]
  - POOR PERIPHERAL CIRCULATION [None]
  - SKIN ULCER [None]
